FAERS Safety Report 21300034 (Version 1)
Quarter: 2022Q3

REPORT INFORMATION
  Report Type: Spontaneous
  Country: US (occurrence: US)
  Receive Date: 20220906
  Receipt Date: 20220906
  Transmission Date: 20221026
  Serious: Yes (Other)
  Sender: FDA-Public Use
  Company Number: US-SA-SAC20220902000638

PATIENT

DRUGS (2)
  1. ZANTAC [Suspect]
     Active Substance: RANITIDINE HYDROCHLORIDE
     Dosage: UNK, OVER THE COUNTER ZANTAC
     Route: 048
     Dates: start: 2005, end: 2021
  2. RANITIDINE [Suspect]
     Active Substance: RANITIDINE
     Dosage: UNK, OVER THE COUNTER RANITIDINE FROM APPROXIMATELY 2005 TO 2021
     Route: 048
     Dates: start: 2005, end: 2021

REACTIONS (1)
  - Breast cancer [Unknown]
